FAERS Safety Report 25639139 (Version 1)
Quarter: 2025Q3

REPORT INFORMATION
  Report Type: Spontaneous
  Country: EU (occurrence: EU)
  Receive Date: 20250804
  Receipt Date: 20250804
  Transmission Date: 20251020
  Serious: Yes (Death, Hospitalization)
  Sender: ALEXION PHARMACEUTICALS
  Company Number: EU-ASTRAZENECA-202507EEA003614IT

PATIENT
  Age: 61 Year
  Sex: Female

DRUGS (3)
  1. CAPIVASERTIB [Suspect]
     Active Substance: CAPIVASERTIB
     Route: 065
  2. FULVESTRANT [Suspect]
     Active Substance: FULVESTRANT
     Route: 065
  3. FULVESTRANT [Suspect]
     Active Substance: FULVESTRANT

REACTIONS (5)
  - Transaminases increased [Fatal]
  - Blood bilirubin increased [Fatal]
  - Hepatic failure [Fatal]
  - Abdominal pain [Unknown]
  - Hyperglycaemia [Unknown]
